FAERS Safety Report 21025624 (Version 1)
Quarter: 2022Q2

REPORT INFORMATION
  Report Type: Report from Study
  Country: IT (occurrence: IT)
  Receive Date: 20220630
  Receipt Date: 20220630
  Transmission Date: 20220721
  Serious: Yes (Death, Other)
  Sender: FDA-Public Use
  Company Number: IT-CELLTRION INC.-2022IT010172

PATIENT

DRUGS (7)
  1. RITUXIMAB [Suspect]
     Active Substance: RITUXIMAB
     Indication: Cutaneous vasculitis
     Dosage: 1000 MG, TOTAL (CUMULATIVE DOSE TO FIRST REACTION: 1000 MG)
     Dates: start: 20211108, end: 20211108
  2. SOLU-MEDROL [Suspect]
     Active Substance: METHYLPREDNISOLONE SODIUM SUCCINATE
     Indication: Cutaneous vasculitis
     Dosage: 1 {DF}, TOTAL (CUMULATIVE DOSE TO FIRST REACTION: 1 {DF})
     Route: 042
     Dates: start: 20211108, end: 20211108
  3. PREDNISONE [Concomitant]
     Active Substance: PREDNISONE
     Indication: Cutaneous vasculitis
     Dosage: 1 {DF}
     Route: 048
     Dates: start: 20160101
  4. LYRICA [Concomitant]
     Active Substance: PREGABALIN
     Indication: Neuropathy peripheral
     Dosage: 1 {DF}
     Route: 048
  5. ASPIRIN [Concomitant]
     Active Substance: ASPIRIN
     Indication: Thrombosis prophylaxis
     Dosage: 1 {DF}
     Route: 048
  6. PANTOPRAZOLE [Concomitant]
     Active Substance: PANTOPRAZOLE
     Indication: Prophylaxis against gastrointestinal ulcer
     Dosage: 20 MG
     Route: 048
  7. PALEXIA [Concomitant]
     Active Substance: TAPENTADOL HYDROCHLORIDE
     Indication: Neuralgia
     Dosage: 1 {DF}
     Route: 048

REACTIONS (2)
  - Meningitis [Fatal]
  - Off label use [Unknown]

NARRATIVE: CASE EVENT DATE: 20220130
